FAERS Safety Report 8046009 (Version 7)
Quarter: 2013Q2

REPORT INFORMATION
  Report Type: Spontaneous
  Country: US (occurrence: US)
  Receive Date: 20110720
  Receipt Date: 20130531
  Transmission Date: 20140414
  Serious: Yes (Life-Threatening, Hospitalization, Congenital Anomaly, Other)
  Sender: FDA-Public Use
  Company Number: US-PFIZER INC-2011159565

PATIENT
  Sex: Male
  Weight: 2.5 kg

DRUGS (8)
  1. EFFEXOR XR [Suspect]
     Indication: DEPRESSION
     Dosage: 150 MG, 1X/DAY
     Route: 064
  2. VENLAFAXINE HCL [Suspect]
     Dosage: UNK
     Route: 064
  3. ZOFRAN [Concomitant]
     Indication: MIGRAINE
     Dosage: 8 MG, UNK
     Route: 064
     Dates: start: 20070507
  4. TYLENOL [Concomitant]
     Indication: MIGRAINE
     Dosage: UNK
     Route: 064
     Dates: start: 20070507
  5. PROMETHAZINE [Concomitant]
     Dosage: 25 MG, UNK
     Route: 064
     Dates: start: 20070518
  6. FIORICET [Concomitant]
     Indication: SLEEP DISORDER
     Dosage: UNK
     Route: 064
     Dates: start: 20071106
  7. AMBIEN [Concomitant]
     Indication: SLEEP DISORDER
     Dosage: 5 MG, UNK
     Route: 064
     Dates: start: 20071106
  8. ARMOUR THYROID [Concomitant]
     Indication: HYPOTHYROIDISM
     Dosage: 120 MG, UNK
     Route: 064

REACTIONS (19)
  - Maternal exposure timing unspecified [Unknown]
  - Hypoplastic left heart syndrome [Not Recovered/Not Resolved]
  - Shock [Unknown]
  - Cardiac failure congestive [Unknown]
  - Pulmonary vein stenosis [Unknown]
  - Patent ductus arteriosus [Unknown]
  - Atelectasis neonatal [Not Recovered/Not Resolved]
  - Congenital pulmonary artery anomaly [Unknown]
  - Tricuspid valve disease [Unknown]
  - Atrial septal defect [Unknown]
  - Renal failure acute [Recovered/Resolved]
  - Malnutrition [Unknown]
  - Cardiomegaly [Recovering/Resolving]
  - Respiratory distress [Unknown]
  - Transient ischaemic attack [Unknown]
  - Atrial tachycardia [Recovered/Resolved]
  - Failure to thrive [Unknown]
  - Scoliosis [Not Recovered/Not Resolved]
  - Vocal cord paresis [Unknown]
